FAERS Safety Report 5195742-7 (Version None)
Quarter: 2007Q1

REPORT INFORMATION
  Report Type: 
  Country: None (occurrence: None)
  Receive Date: 20070102
  Receipt Date: 20061219
  Transmission Date: 20070707
  Serious: Yes (Hospitalization)
  Sender: FDA-Public Use
  Company Number: 2006SE06904

PATIENT
  Age: 20047 Day
  Sex: Male
  Weight: 65 kg

DRUGS (2)
  1. SYMBICORT FORTE [Suspect]
     Indication: ASTHMA
     Dosage: 320/9 UG, 4 INHALATIONS PER DAY
     Route: 055
     Dates: start: 20060213, end: 20061124
  2. DRUGS FOR OBSTRUCTIVE AIRWAY DISEASES [Concomitant]
     Indication: OBSTRUCTIVE AIRWAYS DISORDER

REACTIONS (3)
  - MUSCLE SPASMS [None]
  - PAIN [None]
  - STIFF-MAN SYNDROME [None]
